FAERS Safety Report 9589622 (Version 1)
Quarter: 2013Q4

REPORT INFORMATION
  Report Type: Spontaneous
  Country: US (occurrence: US)
  Receive Date: 20131003
  Receipt Date: 20131003
  Transmission Date: 20140711
  Serious: No
  Sender: FDA-Public Use
  Company Number: US-AMGEN-USASP2012071264

PATIENT
  Age: 53 Year
  Sex: Female
  Weight: 71.66 kg

DRUGS (8)
  1. ENBREL [Suspect]
     Indication: RHEUMATOID ARTHRITIS
     Dosage: 50 MG, QWK
     Route: 058
  2. PRILOSEC                           /00661201/ [Concomitant]
     Dosage: 10 MG, UNK
  3. IRON [Concomitant]
     Dosage: 25 MG, UNK
  4. FISH OIL [Concomitant]
     Dosage: 1200 MG, UNK
  5. CALCIUM [Concomitant]
     Dosage: 500 MG, UNK
  6. VITAMIN D                          /00107901/ [Concomitant]
     Dosage: 2000 UNIT, UNK
  7. DICLOFENAC                         /00372302/ [Concomitant]
     Dosage: 50 MG, UNK
  8. VICODIN [Concomitant]
     Dosage: 300 MG, UNK

REACTIONS (3)
  - Rheumatoid arthritis [Unknown]
  - Therapeutic response decreased [Unknown]
  - Abdominal discomfort [Unknown]
